FAERS Safety Report 6597692-8 (Version None)
Quarter: 2010Q1

REPORT INFORMATION
  Report Type: 
  Country: None (occurrence: None)
  Receive Date: 20100223
  Receipt Date: 20100217
  Transmission Date: 20100710
  Serious: Yes (Hospitalization)
  Sender: FDA-Public Use
  Company Number: US-AMGEN-KDC393533

PATIENT
  Sex: Female
  Weight: 102.2 kg

DRUGS (13)
  1. NEULASTA [Suspect]
     Indication: CHEMOTHERAPY
     Dates: start: 20100127
  2. ABRAXANE [Suspect]
     Dates: start: 20091027
  3. HERCEPTIN [Suspect]
     Dates: start: 20091027
  4. ADRIAMYCIN PFS [Suspect]
     Dates: start: 20100126
  5. CYTOXAN [Suspect]
     Dates: start: 20100126
  6. DIFLUCAN [Concomitant]
  7. LORAZEPAM [Concomitant]
  8. PHENERGAN HCL [Concomitant]
  9. FLONASE [Concomitant]
  10. TRIFLURIDINE [Concomitant]
  11. PHENYLEPHRINE HCL [Concomitant]
  12. SIMVASTATIN [Concomitant]
  13. SUDAFED 12 HOUR [Concomitant]

REACTIONS (2)
  - ABDOMINAL PAIN UPPER [None]
  - CHEST PAIN [None]
